FAERS Safety Report 7813408-9 (Version None)
Quarter: 2011Q4

REPORT INFORMATION
  Report Type: 
  Country: None (occurrence: None)
  Receive Date: 20111014
  Receipt Date: 20111006
  Transmission Date: 20120403
  Serious: Yes (Other)
  Sender: FDA-Public Use
  Company Number: US-BIOGENIDEC-2010BI030836

PATIENT
  Age: 26 Year
  Sex: Female

DRUGS (6)
  1. VITAMIN AND MINERAL PRENATAL SUPPLEMENT W/ FOLIC ACID CAP [Concomitant]
  2. AMBIEN [Concomitant]
  3. ZANAFLEX [Concomitant]
     Dates: end: 20100101
  4. TYSABRI [Suspect]
     Indication: MULTIPLE SCLEROSIS
     Route: 042
     Dates: start: 20090721, end: 20100616
  5. VITAMIN B-12 [Concomitant]
  6. NUVIGIL [Concomitant]
     Dates: end: 20100101

REACTIONS (1)
  - CAESAREAN SECTION [None]
